FAERS Safety Report 7972670-2 (Version None)
Quarter: 2011Q4

REPORT INFORMATION
  Report Type: 
  Country: None (occurrence: None)
  Receive Date: 20111209
  Receipt Date: 20111205
  Transmission Date: 20120403
  Serious: Yes (Death, Other)
  Sender: FDA-Public Use
  Company Number: 1000025739

PATIENT
  Sex: Male

DRUGS (6)
  1. DONEPEZIL HCL [Concomitant]
  2. QUETIAPINE FUMARATE [Concomitant]
  3. PIOGLITAZONE [Concomitant]
  4. DARIFENACIN [Concomitant]
  5. NAMENDA [Suspect]
     Dosage: 10 MG BID (10 MG, 2 IN 1 D)
  6. SITAGLIPTIN [Concomitant]

REACTIONS (2)
  - MYOCARDIAL INFARCTION [None]
  - DRUG LEVEL INCREASED [None]
